FAERS Safety Report 6924324-9 (Version None)
Quarter: 2010Q3

REPORT INFORMATION
  Report Type: 
  Country: None (occurrence: None)
  Receive Date: 20100811
  Receipt Date: 20100811
  Transmission Date: 20110219
  Serious: Yes (Life-Threatening, Hospitalization, Other)
  Sender: FDA-Public Use
  Company Number: None

PATIENT
  Age: 26 Year
  Sex: Male
  Weight: 83.9154 kg

DRUGS (2)
  1. CLINDAMYCIN [Suspect]
     Indication: SKIN BACTERIAL INFECTION
     Dosage: 300MG 4 X DAY 10DAYS
     Dates: start: 20100726, end: 20100806
  2. SULFAMETHOXAZOLE AND TRIMETHOPRIM DOUBLE STRENGTH [Suspect]

REACTIONS (13)
  - ASTHENIA [None]
  - BLOOD PRESSURE INCREASED [None]
  - CHILLS [None]
  - COLD SWEAT [None]
  - DIARRHOEA [None]
  - DYSGEUSIA [None]
  - DYSPEPSIA [None]
  - DYSPNOEA [None]
  - HALLUCINATION [None]
  - PALPITATIONS [None]
  - TENSION HEADACHE [None]
  - THROAT TIGHTNESS [None]
  - URTICARIA [None]
